FAERS Safety Report 18734242 (Version 1)
Quarter: 2021Q1

REPORT INFORMATION
  Report Type: Spontaneous
  Country: US (occurrence: US)
  Receive Date: 20210112
  Receipt Date: 20210112
  Transmission Date: 20210419
  Serious: Yes (Hospitalization)
  Sender: FDA-Public Use
  Company Number: None

PATIENT
  Age: 86 Year
  Sex: Male
  Weight: 72.7 kg

DRUGS (1)
  1. BAMLANIVIMAB. [Suspect]
     Active Substance: BAMLANIVIMAB
     Indication: COVID-19
     Dosage: ?          OTHER FREQUENCY:ONCE;?
     Route: 041
     Dates: start: 20210108, end: 20210108

REACTIONS (5)
  - Chest pain [None]
  - Atrial fibrillation [None]
  - Condition aggravated [None]
  - Troponin increased [None]
  - Chest discomfort [None]

NARRATIVE: CASE EVENT DATE: 20210109
